FAERS Safety Report 5241545-4 (Version None)
Quarter: 2007Q1

REPORT INFORMATION
  Report Type: 
  Country: None (occurrence: None)
  Receive Date: 20070220
  Receipt Date: 20070214
  Transmission Date: 20070707
  Serious: Yes (Other)
  Sender: FDA-Public Use
  Company Number: DE-GLAXOSMITHKLINE-D0052303A

PATIENT
  Age: 27 Year
  Sex: Male

DRUGS (3)
  1. ARIXTRA [Suspect]
     Indication: THROMBOSIS PROPHYLAXIS
     Dosage: 2.5MG PER DAY
     Route: 058
     Dates: start: 20060701, end: 20070101
  2. EMBOLEX [Concomitant]
     Route: 058
  3. MARCUMAR [Concomitant]
     Route: 048
     Dates: start: 20050101, end: 20060401

REACTIONS (5)
  - ECCHYMOSIS [None]
  - GINGIVAL BLEEDING [None]
  - INJECTION SITE HAEMATOMA [None]
  - PETECHIAE [None]
  - THROMBOCYTOPENIA [None]
